FAERS Safety Report 8480695-6 (Version None)
Quarter: 2012Q3

REPORT INFORMATION
  Report Type: 
  Country: None (occurrence: None)
  Receive Date: 20120702
  Receipt Date: 20120621
  Transmission Date: 20120928
  Serious: No
  Sender: FDA-Public Use
  Company Number: US-PFIZER INC-2012108273

PATIENT
  Sex: Female
  Weight: 68 kg

DRUGS (4)
  1. RESTASIS [Concomitant]
     Indication: DRY EYE
     Dosage: UNK
  2. LOVAZA [Concomitant]
     Indication: SUPPLEMENTATION THERAPY
     Dosage: 1200 MG, UNK
  3. ESTRING [Suspect]
     Indication: VULVOVAGINAL DRYNESS
     Dosage: 2 MG, UNK
     Route: 067
     Dates: start: 20120430, end: 20120501
  4. LEVOTHYROXINE [Concomitant]
     Indication: HYPOTHYROIDISM
     Dosage: UNK

REACTIONS (2)
  - VULVOVAGINAL PAIN [None]
  - VULVOVAGINAL DISCOMFORT [None]
